FAERS Safety Report 21752319 (Version 1)
Quarter: 2022Q4

REPORT INFORMATION
  Report Type: Spontaneous
  Country: US (occurrence: US)
  Receive Date: 20221220
  Receipt Date: 20221220
  Transmission Date: 20230113
  Serious: Yes (Hospitalization, Other)
  Sender: FDA-Public Use
  Company Number: None

PATIENT
  Age: 39 Year
  Sex: Female

DRUGS (2)
  1. CLONIDINE HYDROCHLORIDE [Suspect]
     Active Substance: CLONIDINE HYDROCHLORIDE
     Indication: Product used for unknown indication
     Route: 065
  2. YOHIMBINE [Suspect]
     Active Substance: YOHIMBINE
     Indication: Product used for unknown indication
     Route: 065

REACTIONS (7)
  - Haemorrhage intracranial [Unknown]
  - Basal ganglia haemorrhage [Unknown]
  - Hypertensive crisis [Unknown]
  - Hemiparesis [Unknown]
  - Flushing [Unknown]
  - Nausea [Unknown]
  - Vomiting [Unknown]
